FAERS Safety Report 8850520 (Version 3)
Quarter: 2013Q1

REPORT INFORMATION
  Report Type: Report from Study
  Country: FR (occurrence: FR)
  Receive Date: 20121019
  Receipt Date: 20130124
  Transmission Date: 20140127
  Serious: Yes (Other)
  Sender: FDA-Public Use
  Company Number: FR-ROCHE-1144789

PATIENT
  Age: 62 Year
  Sex: Female
  Weight: 47.5 kg

DRUGS (33)
  1. RITUXIMAB [Suspect]
     Indication: NON-HODGKIN^S LYMPHOMA
     Dosage: DATE OF LAST DOSE PROIR TO SAE 20/JUN/2012
     Route: 058
     Dates: start: 20120418
  2. RITUXIMAB [Suspect]
     Dosage: DATE OF LAST DOSE PROIR TO SAE 20/JUN/2012
     Route: 058
     Dates: start: 20120509
  3. RITUXIMAB [Suspect]
     Route: 058
     Dates: start: 20120530
  4. RITUXIMAB [Suspect]
     Route: 058
     Dates: start: 20120620
  5. RITUXIMAB [Suspect]
     Route: 058
     Dates: start: 20120801
  6. RITUXIMAB [Suspect]
     Route: 058
     Dates: start: 20120822
  7. RITUXIMAB [Suspect]
     Route: 058
     Dates: start: 20120912
  8. INEXIUM [Concomitant]
     Indication: PROPHYLAXIS OF NAUSEA AND VOMITING
     Route: 065
     Dates: start: 20120418, end: 20120419
  9. METEOXANE [Concomitant]
     Indication: DYSPEPSIA
     Route: 065
     Dates: start: 2000
  10. ZOPHREN [Concomitant]
     Indication: PROPHYLAXIS OF NAUSEA AND VOMITING
     Dosage: 3 BLISTER
     Route: 065
     Dates: start: 20120418, end: 20120419
  11. ZOPHREN [Concomitant]
     Route: 065
     Dates: start: 20120509, end: 20120509
  12. STILNOX [Concomitant]
     Indication: INSOMNIA
     Route: 065
     Dates: start: 20120509, end: 20120620
  13. FILGRASTIM [Concomitant]
     Route: 065
     Dates: start: 20120424, end: 20120916
  14. LEXOMIL [Concomitant]
     Indication: ANXIETY
     Route: 065
     Dates: start: 20120418, end: 20120418
  15. FASTURTEC [Concomitant]
     Indication: PROPHYLAXIS
     Route: 065
     Dates: start: 20120418, end: 20120418
  16. PARACETAMOL [Concomitant]
     Route: 065
     Dates: start: 20120418, end: 20120912
  17. POLARAMINE [Concomitant]
     Route: 065
     Dates: start: 20120418, end: 20120912
  18. SOLU-MEDROL [Concomitant]
     Indication: PROPHYLACTIC CHEMOTHERAPY
     Route: 065
     Dates: start: 20120418, end: 20120912
  19. PREDNISOLONE [Concomitant]
     Indication: PROPHYLACTIC CHEMOTHERAPY
     Route: 065
     Dates: start: 20120418
  20. SMECTA [Concomitant]
     Indication: DIARRHOEA
     Route: 065
     Dates: start: 20120622, end: 20120912
  21. SMECTA [Concomitant]
     Route: 065
     Dates: start: 20121010, end: 20121011
  22. AERIUS [Concomitant]
     Indication: LACRIMATION INCREASED
     Route: 065
     Dates: start: 201208
  23. DACRYOSERUM [Concomitant]
     Indication: LACRIMATION INCREASED
     Route: 065
     Dates: start: 201208
  24. BACTRIM [Concomitant]
     Indication: PROPHYLAXIS
     Route: 065
     Dates: start: 20120530
  25. ZELITREX [Concomitant]
     Route: 065
     Dates: start: 20120530
  26. AUGMENTIN [Concomitant]
     Indication: FEBRILE NEUTROPENIA
     Route: 065
     Dates: start: 20121008
  27. OFLOCET [Concomitant]
     Indication: FEBRILE NEUTROPENIA
     Route: 065
     Dates: start: 20121008
  28. TIORFAN [Concomitant]
     Indication: DIARRHOEA
     Route: 065
     Dates: start: 20121010, end: 20121011
  29. IMODIUM [Concomitant]
     Indication: DIARRHOEA
     Route: 065
     Dates: start: 20121010, end: 20121011
  30. ZARZIO [Concomitant]
     Indication: FEBRILE NEUTROPENIA
     Dosage: 30 MU
     Route: 065
     Dates: start: 20121010, end: 20121013
  31. ZARZIO [Concomitant]
     Dosage: 30 MU
     Route: 065
     Dates: start: 20121105, end: 20121107
  32. FLAGYL [Concomitant]
     Indication: FEBRILE NEUTROPENIA
     Route: 065
     Dates: start: 20121114
  33. EMEND [Concomitant]
     Indication: NAUSEA
     Route: 065
     Dates: start: 20120530, end: 20120801

REACTIONS (1)
  - Injection site haematoma [Recovered/Resolved]
